FAERS Safety Report 25763230 (Version 1)
Quarter: 2025Q3

REPORT INFORMATION
  Report Type: Report from Study
  Country: EG (occurrence: EG)
  Receive Date: 20250905
  Receipt Date: 20250905
  Transmission Date: 20251020
  Serious: Yes (Other)
  Sender: NOVARTIS
  Company Number: EG-002147023-NVSC2025EG126884

PATIENT
  Sex: Female

DRUGS (4)
  1. MAYZENT [Suspect]
     Active Substance: SIPONIMOD
     Indication: Multiple sclerosis
     Dosage: 2 MG, QD
     Route: 048
     Dates: start: 20240210
  2. VITAMIN B12 [Concomitant]
     Active Substance: CYANOCOBALAMIN
     Indication: Neuropathy peripheral
     Dosage: 1 DOSAGE FORM, QD (ONE PATCH DAILY)
     Route: 048
     Dates: start: 20240210
  3. VITAMIN B12 [Concomitant]
     Active Substance: CYANOCOBALAMIN
     Indication: Hemiparaesthesia
  4. OMEGA 3 [Concomitant]
     Active Substance: CAPSAICIN
     Indication: Supplementation therapy
     Route: 048
     Dates: start: 20250831

REACTIONS (10)
  - Balance disorder [Recovering/Resolving]
  - Arthralgia [Not Recovered/Not Resolved]
  - Dysstasia [Not Recovered/Not Resolved]
  - Swelling face [Recovered/Resolved]
  - Noninfective gingivitis [Recovered/Resolved]
  - Discharge [Recovered/Resolved]
  - Mental disorder [Not Recovered/Not Resolved]
  - Hypoaesthesia [Not Recovered/Not Resolved]
  - Procedural pain [Recovering/Resolving]
  - Hepatic enzyme increased [Not Recovered/Not Resolved]
